FAERS Safety Report 8163221-0 (Version None)
Quarter: 2012Q1

REPORT INFORMATION
  Report Type: 
  Country: None (occurrence: None)
  Receive Date: 20120224
  Receipt Date: 20110223
  Transmission Date: 20120608
  Serious: No
  Sender: FDA-Public Use
  Company Number: US-PFIZER INC-K201100202

PATIENT
  Age: 43 Year
  Sex: Female
  Weight: 90.703 kg

DRUGS (3)
  1. ESTRADIOL [Concomitant]
     Indication: HORMONE REPLACEMENT THERAPY
     Dosage: UNK
  2. FLECTOR [Suspect]
     Indication: BACK PAIN
     Dosage: 1 PATCH, Q12H
     Route: 061
     Dates: start: 20110218, end: 20110219
  3. LOPRESSOR [Concomitant]
     Indication: HYPERTENSION
     Dosage: UNK

REACTIONS (4)
  - CHROMATURIA [None]
  - ANXIETY [None]
  - FEELING JITTERY [None]
  - APPLICATION SITE RASH [None]
